FAERS Safety Report 6499993-0 (Version None)
Quarter: 2009Q4

REPORT INFORMATION
  Report Type: 
  Country: None (occurrence: None)
  Receive Date: 20091216
  Receipt Date: 20091007
  Transmission Date: 20100525
  Serious: Yes (Other)
  Sender: FDA-Public Use
  Company Number: A0810993A

PATIENT
  Sex: Female

DRUGS (2)
  1. LAMICTAL XR [Suspect]
     Indication: PARTIAL SEIZURES
     Route: 048
     Dates: start: 20091001, end: 20091001
  2. TOPAMAX [Concomitant]

REACTIONS (1)
  - RASH [None]
